FAERS Safety Report 5884182-0 (Version None)
Quarter: 2008Q3

REPORT INFORMATION
  Report Type: 
  Country: None (occurrence: None)
  Receive Date: 20080911
  Receipt Date: 20080903
  Transmission Date: 20090109
  Serious: Yes (Death)
  Sender: FDA-Public Use
  Company Number: 2008AL004364

PATIENT
  Age: 66 Year
  Sex: Male
  Weight: 86.1834 kg

DRUGS (10)
  1. DIGOXIN [Suspect]
     Indication: ARRHYTHMIA
     Dosage: 0.125MG, DAILY, PO
     Route: 048
     Dates: start: 20070311
  2. THYROID MEDICATION (UNKNOWN) [Concomitant]
  3. CHOLESTEROL MEDICATION (UNIKNOWN) [Concomitant]
  4. ASIPRIN [Concomitant]
  5. COREG [Concomitant]
  6. LISINOPRIL [Concomitant]
  7. ZYVOX [Concomitant]
  8. PREDNISONE [Concomitant]
  9. ADVAIR DISKUS 100/50 [Concomitant]
  10. NITROGLYCERIN [Concomitant]

REACTIONS (5)
  - CARDIAC ARREST [None]
  - DYSPNOEA [None]
  - FEELING ABNORMAL [None]
  - GENERAL PHYSICAL HEALTH DETERIORATION [None]
  - UNRESPONSIVE TO STIMULI [None]
